FAERS Safety Report 5569764-8 (Version None)
Quarter: 2007Q4

REPORT INFORMATION
  Report Type: 
  Country: None (occurrence: None)
  Receive Date: 20071220
  Receipt Date: 20061220
  Transmission Date: 20080405
  Serious: No
  Sender: FDA-Public Use
  Company Number: US-ABBOTT-06P-163-0354082-00

PATIENT
  Sex: Male
  Weight: 77.18 kg

DRUGS (2)
  1. OMNICEF [Suspect]
     Indication: SINUS HEADACHE
     Route: 048
     Dates: start: 20061129, end: 20061209
  2. CETIRIZINE HYDROCHLORIDE [Concomitant]
     Indication: DRUG USE FOR UNKNOWN INDICATION

REACTIONS (1)
  - DRUG INEFFECTIVE [None]
